FAERS Safety Report 5969271-4 (Version None)
Quarter: 2008Q4

REPORT INFORMATION
  Report Type: 
  Country: None (occurrence: None)
  Receive Date: 20081126
  Receipt Date: 20080826
  Transmission Date: 20090506
  Serious: No
  Sender: FDA-Public Use
  Company Number: US-ABBOTT-08P-163-0472427-00

PATIENT
  Sex: Male
  Weight: 86.26 kg

DRUGS (7)
  1. SIMCOR [Suspect]
     Indication: BLOOD CHOLESTEROL INCREASED
     Dosage: 500/20 MG 2 TABLETS AT BEDTIME
     Route: 048
  2. SIMCOR [Suspect]
     Indication: BLOOD TRIGLYCERIDES INCREASED
  3. SOTALOL HCL [Concomitant]
     Indication: CARDIAC DISORDER
  4. DUTASTERIDE [Concomitant]
     Indication: PROSTATOMEGALY
  5. KLORCHON [Concomitant]
     Indication: DRUG USE FOR UNKNOWN INDICATION
  6. TOSEMIDE [Concomitant]
     Indication: DRUG USE FOR UNKNOWN INDICATION
  7. WARFARIN SODIUM [Concomitant]
     Indication: CARDIAC PACEMAKER INSERTION

REACTIONS (1)
  - STOMATITIS [None]
